FAERS Safety Report 7436132-3 (Version None)
Quarter: 2011Q2

REPORT INFORMATION
  Report Type: 
  Country: None (occurrence: None)
  Receive Date: 20110425
  Receipt Date: 20110412
  Transmission Date: 20111010
  Serious: Yes (Other)
  Sender: FDA-Public Use
  Company Number: US-BAYER-2011-033268

PATIENT
  Sex: Male

DRUGS (1)
  1. ONE-A-DAY MEN'S 50 + ADVANTAGE [Suspect]
     Dosage: COUNT BOTTLE UNKNOWN
     Route: 048

REACTIONS (2)
  - WEIGHT DECREASED [None]
  - DIABETES MELLITUS [None]
